FAERS Safety Report 24627565 (Version 1)
Quarter: 2024Q4

REPORT INFORMATION
  Report Type: Spontaneous
  Country: NL (occurrence: NL)
  Receive Date: 20241116
  Receipt Date: 20241116
  Transmission Date: 20250115
  Serious: Yes (Life-Threatening, Other)
  Sender: AUROBINDO
  Company Number: NL-LRB-01011789

PATIENT
  Age: 67 Year
  Sex: Male
  Weight: 80.5 kg

DRUGS (4)
  1. CARVEDILOL [Suspect]
     Active Substance: CARVEDILOL
     Indication: Portal hypertension
     Dosage: 6.25 MILLIGRAM, TWO TIMES A DAY (EVERY 12 HOURS), 1 PIECE
     Route: 048
     Dates: start: 20241022, end: 20241028
  2. SPIRONOLACTONE [Suspect]
     Active Substance: SPIRONOLACTONE
     Indication: Product used for unknown indication
     Dosage: 25 MILLIGRAM, TWO TIMES A DAY (EVERY 12 HOURS), 1 PIECE)
     Route: 048
     Dates: start: 20230327, end: 20241028
  3. CALCIUM POLYSTYRENE SULFONATE [Concomitant]
     Active Substance: CALCIUM POLYSTYRENE SULFONATE
     Indication: Product used for unknown indication
     Dosage: 2DD20 G
     Route: 065
  4. SODIUM BICARBONATE [Concomitant]
     Active Substance: SODIUM BICARBONATE
     Indication: Product used for unknown indication
     Dosage: 84 MILLIGRAM PER MILLILITRE, INFUSION FLUID
     Route: 065

REACTIONS (4)
  - Rhythm idioventricular [Recovered/Resolved]
  - Sinus arrest [Recovered/Resolved]
  - Hyperkalaemia [Recovered/Resolved]
  - Bradycardia [Recovered/Resolved]
